FAERS Safety Report 16742932 (Version 2)
Quarter: 2019Q3

REPORT INFORMATION
  Report Type: Spontaneous
  Country: US (occurrence: US)
  Receive Date: 20190827
  Receipt Date: 20190827
  Transmission Date: 20191005
  Serious: Yes (Other)
  Sender: FDA-Public Use
  Company Number: US-SA-2019SA224524

PATIENT
  Age: 79 Year
  Sex: Male

DRUGS (1)
  1. SOLIQUA 100/33 [Suspect]
     Active Substance: INSULIN GLARGINE\LIXISENATIDE
     Indication: TYPE 2 DIABETES MELLITUS
     Dosage: 30 U, HS
     Route: 065

REACTIONS (9)
  - Musculoskeletal discomfort [Unknown]
  - Dry throat [Unknown]
  - Back disorder [Unknown]
  - Arthritis [Unknown]
  - Cough [Unknown]
  - Procedural pain [Unknown]
  - Wrong technique in device usage process [Unknown]
  - Chest discomfort [Unknown]
  - Arthropathy [Unknown]
